FAERS Safety Report 6708690-5 (Version None)
Quarter: 2010Q2

REPORT INFORMATION
  Report Type: 
  Country: None (occurrence: None)
  Receive Date: 20100503
  Receipt Date: 20100423
  Transmission Date: 20101027
  Serious: Yes (Hospitalization)
  Sender: FDA-Public Use
  Company Number: JP-MERCK-1004USA04383

PATIENT
  Age: 73 Year
  Sex: Female

DRUGS (2)
  1. JANUVIA [Suspect]
     Indication: DIABETES MELLITUS
     Route: 048
     Dates: start: 20091201, end: 20100107
  2. AMARYL [Concomitant]
     Route: 048
     Dates: end: 20091201

REACTIONS (1)
  - NEPHROTIC SYNDROME [None]
